FAERS Safety Report 8574488-9 (Version None)
Quarter: 2012Q3

REPORT INFORMATION
  Report Type: 
  Country: None (occurrence: None)
  Receive Date: 20120806
  Receipt Date: 20110929
  Transmission Date: 20120928
  Serious: No
  Sender: FDA-Public Use
  Company Number: US-ABBOTT-11P-163-0860321-00

PATIENT
  Sex: Female

DRUGS (3)
  1. HYDROCHLOROTHIAZDE TAB [Concomitant]
     Indication: HYPERTENSION
  2. DEPAKOTE ER [Suspect]
     Indication: HEADACHE
  3. PAXIL [Concomitant]
     Indication: OBSESSIVE-COMPULSIVE DISORDER

REACTIONS (2)
  - ALOPECIA [None]
  - TREMOR [None]
